FAERS Safety Report 8162987-3 (Version None)
Quarter: 2012Q1

REPORT INFORMATION
  Report Type: 
  Country: None (occurrence: None)
  Receive Date: 20120224
  Receipt Date: 20111202
  Transmission Date: 20120608
  Serious: Yes (Other)
  Sender: FDA-Public Use
  Company Number: US-GLAXOSMITHKLINE-A0956459A

PATIENT
  Age: 69 Year
  Sex: Female

DRUGS (16)
  1. OXYCODONE HCL [Concomitant]
  2. PROTONIX [Concomitant]
  3. CYMBALTA [Concomitant]
  4. MARINOL [Concomitant]
  5. ARZERRA [Suspect]
     Indication: CHRONIC LYMPHOCYTIC LEUKAEMIA
     Dosage: 2000MG WEEKLY
     Route: 042
     Dates: start: 20111109
  6. FUROSEMIDE [Concomitant]
  7. MORPHINE [Concomitant]
     Dosage: 15MG TWICE PER DAY
  8. LOMOTIL [Concomitant]
  9. ZYRTEC [Concomitant]
  10. COMPAZINE [Concomitant]
  11. ZOFRAN [Concomitant]
  12. UNSPECIFIED MEDICATION [Concomitant]
     Indication: PROPHYLAXIS
     Dosage: 800MG TWICE PER DAY
  13. BACTRIM DS [Concomitant]
  14. POTASSIUM CHLORIDE [Concomitant]
  15. IMODIUM [Concomitant]
  16. QUESTRAN [Concomitant]

REACTIONS (1)
  - NEUTROPENIA [None]
